FAERS Safety Report 17899081 (Version 1)
Quarter: 2020Q2

REPORT INFORMATION
  Report Type: Other
  Country: US (occurrence: US)
  Receive Date: 20200616
  Receipt Date: 20200616
  Transmission Date: 20200714
  Serious: Yes (Death, Hospitalization)
  Sender: FDA-Public Use
  Company Number: US-NUVO PHARMACEUTICALS INC-2085903

PATIENT
  Age: 3 Decade
  Sex: Male

DRUGS (1)
  1. OXYCODONE HYDROCHLORIDE. [Suspect]
     Active Substance: OXYCODONE HYDROCHLORIDE
     Indication: PAIN
     Route: 065

REACTIONS (5)
  - Drug abuse [Fatal]
  - Cardio-respiratory arrest [Fatal]
  - Pulmonary oedema [Fatal]
  - Incorrect product administration duration [Unknown]
  - Intentional overdose [Fatal]
